FAERS Safety Report 6980211-1 (Version None)
Quarter: 2010Q3

REPORT INFORMATION
  Report Type: 
  Country: None (occurrence: None)
  Receive Date: 20100914
  Receipt Date: 20091030
  Transmission Date: 20110219
  Serious: Yes (Hospitalization)
  Sender: FDA-Public Use
  Company Number: JP-ROCHE-665031

PATIENT
  Age: 3 Month
  Sex: Female

DRUGS (6)
  1. DENOSINE IV [Suspect]
     Indication: CYTOMEGALOVIRUS INFECTION
     Dosage: DOSE FORM: INFUSION
     Route: 042
  2. IFOSFAMIDE [Concomitant]
  3. ETOPOSIDE [Concomitant]
  4. BUSULFAN [Concomitant]
  5. THIOTEPA [Concomitant]
  6. CARBOPLATIN [Concomitant]

REACTIONS (2)
  - PYREXIA [None]
  - VOMITING [None]
